FAERS Safety Report 11243321 (Version 1)
Quarter: 2015Q3

REPORT INFORMATION
  Report Type: Spontaneous
  Country: US (occurrence: None)
  Receive Date: 20150702
  Receipt Date: 20150702
  Transmission Date: 20151125
  Serious: Yes (Death, Life-Threatening, Hospitalization)
  Sender: FDA-Public Use
  Company Number: None

PATIENT
  Age: 66 Year
  Sex: Male

DRUGS (4)
  1. PREDNISONE. [Concomitant]
     Active Substance: PREDNISONE
  2. SUTENT [Suspect]
     Active Substance: SUNITINIB MALATE
     Indication: THYMOMA MALIGNANT
     Route: 048
     Dates: start: 20150607, end: 20150621
  3. BARACLUDE [Concomitant]
     Active Substance: ENTECAVIR
  4. XARELTO [Concomitant]
     Active Substance: RIVAROXABAN

REACTIONS (5)
  - Gastrointestinal haemorrhage [None]
  - Pain [None]
  - Gastrointestinal perforation [None]
  - No therapeutic response [None]
  - Intestinal haemorrhage [None]

NARRATIVE: CASE EVENT DATE: 20150621
